FAERS Safety Report 5051464-4 (Version None)
Quarter: 2006Q3

REPORT INFORMATION
  Report Type: 
  Country: None (occurrence: None)
  Receive Date: 20060714
  Receipt Date: 20060706
  Transmission Date: 20061208
  Serious: Yes (Other)
  Sender: FDA-Public Use
  Company Number: 2006CG01170

PATIENT

DRUGS (1)
  1. NAROPIN [Suspect]
     Indication: ANAESTHESIA
     Route: 065

REACTIONS (1)
  - CAUDA EQUINA SYNDROME [None]
